FAERS Safety Report 8836979 (Version 1)
Quarter: 2012Q4

REPORT INFORMATION
  Report Type: 
  Country: US (occurrence: US)
  Receive Date: 20121012
  Receipt Date: 20121012
  Transmission Date: 20130627
  Serious: Yes (Other)
  Sender: FDA-Public Use
  Company Number: PHEH2012US019906

PATIENT
  Age: 67 Year
  Sex: Female

DRUGS (1)
  1. GLEEVEC [Suspect]
     Indication: CHRONIC MYELOID LEUKAEMIA
     Dosage: 400 mg, daily
     Route: 048
     Dates: start: 20120823

REACTIONS (5)
  - Pharyngeal oedema [Unknown]
  - Lip swelling [Unknown]
  - Swelling face [Unknown]
  - Eye swelling [Unknown]
  - Dyspnoea [Unknown]
